FAERS Safety Report 21163753 (Version 1)
Quarter: 2022Q3

REPORT INFORMATION
  Report Type: Spontaneous
  Country: US (occurrence: US)
  Receive Date: 20220803
  Receipt Date: 20220803
  Transmission Date: 20221027
  Serious: Yes (Other)
  Sender: FDA-Public Use
  Company Number: US-SUN PHARMACEUTICAL INDUSTRIES LTD-2022R1-346756

PATIENT
  Age: 75 Year
  Sex: Male

DRUGS (3)
  1. FOLIC ACID [Suspect]
     Active Substance: FOLIC ACID
     Indication: B-cell lymphoma
     Dosage: UNK UNK, DAILY
     Route: 065
  2. LEUCOVORIN CALCIUM [Suspect]
     Active Substance: LEUCOVORIN CALCIUM
     Indication: B-cell lymphoma
     Dosage: 5MG/M2
     Route: 042
  3. AMINOPHYLLINE [Suspect]
     Active Substance: AMINOPHYLLINE
     Indication: B-cell lymphoma
     Dosage: 5MG/KG Q6HR
     Route: 065

REACTIONS (1)
  - Therapy partial responder [Unknown]
